FAERS Safety Report 6167904-3 (Version None)
Quarter: 2009Q2

REPORT INFORMATION
  Report Type: 
  Country: None (occurrence: None)
  Receive Date: 20090427
  Receipt Date: 20090423
  Transmission Date: 20091009
  Serious: Yes (Life-Threatening, Other)
  Sender: FDA-Public Use
  Company Number: JP-ASTRAZENECA-2007AP06704

PATIENT
  Age: 75 Year
  Sex: Male
  Weight: 59 kg

DRUGS (8)
  1. XYLOCAINE [Suspect]
     Indication: EPIDURAL ANAESTHESIA
     Route: 008
  2. XYLOCAINE [Suspect]
     Dosage: THIS DOSE WAS REPORTED AS CONCOMITANT NOT SUSPECT
     Route: 008
  3. DIPRIVAN [Concomitant]
     Indication: INDUCTION OF ANAESTHESIA
     Route: 042
  4. FENTANYL [Concomitant]
     Indication: INDUCTION OF ANAESTHESIA
     Route: 065
  5. VECURONIUM BROMIDE [Concomitant]
     Indication: INDUCTION OF ANAESTHESIA
     Route: 065
  6. LAUGHING GAS [Concomitant]
     Indication: MAINTENANCE OF ANAESTHESIA
     Dosage: 4L/MIN
     Route: 055
  7. UNKNOWNDRUG [Concomitant]
     Indication: MAINTENANCE OF ANAESTHESIA
     Dosage: 1%, DOSE UNKNOWN
     Route: 055
  8. OXYGEN [Concomitant]

REACTIONS (5)
  - ARTERIOSPASM CORONARY [None]
  - BLOOD PRESSURE DECREASED [None]
  - VENTRICULAR EXTRASYSTOLES [None]
  - VENTRICULAR FIBRILLATION [None]
  - VENTRICULAR TACHYCARDIA [None]
